FAERS Safety Report 9360929 (Version 2)
Quarter: 2013Q3

REPORT INFORMATION
  Report Type: Spontaneous
  Country: FR (occurrence: FR)
  Receive Date: 20130621
  Receipt Date: 20130701
  Transmission Date: 20140515
  Serious: Yes (Hospitalization)
  Sender: FDA-Public Use
  Company Number: FR-SANOFI-AVENTIS-2013SA061416

PATIENT
  Age: 65 Year
  Sex: Male

DRUGS (4)
  1. LOVENOX [Suspect]
     Indication: THROMBOSIS PROPHYLAXIS
     Route: 058
     Dates: start: 20130430, end: 20130506
  2. HEPARIN SODIUM [Suspect]
     Indication: PRODUCT USED FOR UNKNOWN INDICATION
     Route: 042
     Dates: start: 20130507, end: 20130507
  3. HEPARIN SODIUM [Suspect]
     Indication: PRODUCT USED FOR UNKNOWN INDICATION
     Route: 042
     Dates: start: 20130508, end: 20130508
  4. VIT K ANTAGONISTS [Concomitant]

REACTIONS (3)
  - Spinal cord compression [Recovering/Resolving]
  - Monoparesis [Recovering/Resolving]
  - Extradural haematoma [Recovering/Resolving]
